FAERS Safety Report 14730381 (Version 1)
Quarter: 2018Q2

REPORT INFORMATION
  Report Type: Spontaneous
  Country: US (occurrence: US)
  Receive Date: 20180402
  Receipt Date: 20180402
  Transmission Date: 20180711
  Serious: Yes (Hospitalization, Other)
  Sender: FDA-Public Use
  Company Number: None

PATIENT
  Age: 62 Year
  Sex: Female

DRUGS (28)
  1. AZITHROMYCIN ANHYDROUS. [Concomitant]
     Active Substance: AZITHROMYCIN ANHYDROUS
  2. VENTOLIN HFA [Concomitant]
     Active Substance: ALBUTEROL SULFATE
  3. LETROZOLE. [Concomitant]
     Active Substance: LETROZOLE
  4. BENZONATATE. [Concomitant]
     Active Substance: BENZONATATE
  5. CYCLOBENZAPRINE. [Concomitant]
     Active Substance: CYCLOBENZAPRINE
  6. PROCHLORPER [Concomitant]
  7. POT CHL [Concomitant]
  8. IRBESARTAN. [Concomitant]
     Active Substance: IRBESARTAN
  9. PROAIR HFA [Concomitant]
     Active Substance: ALBUTEROL SULFATE
  10. ATORVASTATIN [Concomitant]
     Active Substance: ATORVASTATIN
  11. IVERMECTIN. [Concomitant]
     Active Substance: IVERMECTIN
  12. FUROSEMIDE. [Concomitant]
     Active Substance: FUROSEMIDE
  13. METOCLOPRAMIDE. [Concomitant]
     Active Substance: METOCLOPRAMIDE
  14. SYNTHROID [Concomitant]
     Active Substance: LEVOTHYROXINE SODIUM
  15. AMLODIPINE [Concomitant]
     Active Substance: AMLODIPINE BESYLATE
  16. IBRANCE [Suspect]
     Active Substance: PALBOCICLIB
     Indication: BREAST CANCER
     Dosage: ?          OTHER FREQUENCY:DAYS 1-21;?
     Route: 048
     Dates: start: 20180206
  17. METFORMIN [Concomitant]
     Active Substance: METFORMIN HYDROCHLORIDE
  18. AMOXICILLIN. [Concomitant]
     Active Substance: AMOXICILLIN
  19. LEVOFLOXACIN. [Concomitant]
     Active Substance: LEVOFLOXACIN
  20. OSELTAMIVIR [Concomitant]
     Active Substance: OSELTAMIVIR
  21. PREDNISONE. [Concomitant]
     Active Substance: PREDNISONE
  22. CHLORHEX GLU [Concomitant]
  23. PERMETRIN [Concomitant]
  24. IRBESARTAN. [Concomitant]
     Active Substance: IRBESARTAN
  25. ONDANSETRON [Concomitant]
     Active Substance: ONDANSETRON
  26. HCTZ [Concomitant]
     Active Substance: HYDROCHLOROTHIAZIDE
  27. ROSUVASTATIN. [Concomitant]
     Active Substance: ROSUVASTATIN
  28. MELOXICAM. [Concomitant]
     Active Substance: MELOXICAM

REACTIONS (1)
  - Influenza [None]

NARRATIVE: CASE EVENT DATE: 20180301
